FAERS Safety Report 24302374 (Version 1)
Quarter: 2024Q3

REPORT INFORMATION
  Report Type: Spontaneous
  Country: FR (occurrence: FR)
  Receive Date: 20240910
  Receipt Date: 20240910
  Transmission Date: 20241017
  Serious: Yes (Hospitalization)
  Sender: AMGEN
  Company Number: FR-ROCHE-10000061089

PATIENT
  Age: 61 Year
  Sex: Female

DRUGS (3)
  1. TRASTUZUMAB [Suspect]
     Active Substance: TRASTUZUMAB
     Indication: Metastases to meninges
     Dosage: 150 MILLIGRAM
     Route: 029
     Dates: start: 20240611, end: 20240717
  2. CAPECITABINE [Suspect]
     Active Substance: CAPECITABINE
     Indication: Metastases to meninges
     Dosage: TWICE DAILY ON DAYS 1-14 OF EACH 21-DAY CYCLE
     Route: 048
     Dates: start: 20240611, end: 20240717
  3. TUCATINIB [Suspect]
     Active Substance: TUCATINIB
     Indication: Metastases to meninges
     Dosage: 600 MILLIGRAM
     Route: 048
     Dates: start: 20240611, end: 20240805

REACTIONS (2)
  - General physical health deterioration [Not Recovered/Not Resolved]
  - Diarrhoea [Not Recovered/Not Resolved]

NARRATIVE: CASE EVENT DATE: 20240808
